FAERS Safety Report 15678737 (Version 1)
Quarter: 2018Q4

REPORT INFORMATION
  Report Type: Spontaneous
  Country: US (occurrence: US)
  Receive Date: 20181201
  Receipt Date: 20181201
  Transmission Date: 20190205
  Serious: Yes (Other)
  Sender: FDA-Public Use
  Company Number: None

PATIENT
  Age: 49 Year
  Sex: Female
  Weight: 86.4 kg

DRUGS (11)
  1. LEXAPRO [Concomitant]
     Active Substance: ESCITALOPRAM OXALATE
  2. LAMICTAL [Concomitant]
     Active Substance: LAMOTRIGINE
  3. MULTI VITAMIN [Concomitant]
     Active Substance: VITAMINS
  4. ELMIRON [Suspect]
     Active Substance: PENTOSAN POLYSULFATE SODIUM
     Indication: CYSTITIS INTERSTITIAL
     Dosage: ?          QUANTITY:90 CAPSULE(S);?
     Route: 048
     Dates: start: 19940101, end: 20181112
  5. ABILIFY [Concomitant]
     Active Substance: ARIPIPRAZOLE
  6. PANTRAZOLE (GERDS) [Concomitant]
  7. PROBIOTIC [Concomitant]
     Active Substance: PROBIOTICS NOS
  8. CONCERTA [Concomitant]
     Active Substance: METHYLPHENIDATE HYDROCHLORIDE
  9. DIM [Concomitant]
  10. METOPROLOL HCT [Concomitant]
  11. ZYRTEC [Concomitant]
     Active Substance: CETIRIZINE HYDROCHLORIDE

REACTIONS (3)
  - Stargardt^s disease [None]
  - Retinal pigmentation [None]
  - Retinal drusen [None]

NARRATIVE: CASE EVENT DATE: 20181108
